FAERS Safety Report 23913413 (Version 3)
Quarter: 2025Q4

REPORT INFORMATION
  Report Type: Report from Study
  Country: CN (occurrence: CN)
  Receive Date: 20240529
  Receipt Date: 20251006
  Transmission Date: 20260117
  Serious: Yes (Other)
  Sender: ROCHE
  Company Number: CN-ROCHE-3570175

PATIENT
  Age: 54 Year
  Sex: Male
  Weight: 70 kg

DRUGS (14)
  1. POLATUZUMAB VEDOTIN [Suspect]
     Active Substance: POLATUZUMAB VEDOTIN
     Indication: Diffuse large B-cell lymphoma
     Dosage: FREQUENCY : ONCE
     Route: 042
  2. RITUXIMAB [Suspect]
     Active Substance: RITUXIMAB
     Indication: Diffuse large B-cell lymphoma
     Dosage: START DATE- 13/DEC/2023 END DATE: 13/DEC/2023
     Route: 042
  3. GEMCITABINE [Suspect]
     Active Substance: GEMCITABINE
     Indication: Diffuse large B-cell lymphoma
     Route: 042
  4. OXALIPLATIN [Suspect]
     Active Substance: OXALIPLATIN
     Indication: Diffuse large B-cell lymphoma
     Route: 042
  5. Compound paracetamol tablets [Concomitant]
  6. Levofloxacin sodium chloride injection [Concomitant]
  7. Omeprazole Sodium for Injection [Concomitant]
  8. Omeprazole Enteric-coated Capsules [Concomitant]
  9. Piperazine Ferulate Tablets [Concomitant]
  10. ENTECAVIR [Concomitant]
     Active Substance: ENTECAVIR
  11. diammonium glycyrrhizinate enteric-coated capsules [Concomitant]
  12. Montmorillonite powder [Concomitant]
  13. MOMETASONE FUROATE [Concomitant]
     Active Substance: MOMETASONE FUROATE
  14. LORATADINE [Concomitant]
     Active Substance: LORATADINE

REACTIONS (5)
  - Diarrhoea [Recovered/Resolved]
  - Lymphocyte count decreased [Recovered/Resolved]
  - Pyrexia [Recovered/Resolved]
  - Nausea [Recovered/Resolved]
  - Platelet count decreased [Not Recovered/Not Resolved]

NARRATIVE: CASE EVENT DATE: 20231201
